FAERS Safety Report 7101025-8 (Version None)
Quarter: 2010Q4

REPORT INFORMATION
  Report Type: 
  Country: None (occurrence: None)
  Receive Date: 20101113
  Receipt Date: 20100512
  Transmission Date: 20110411
  Serious: No
  Sender: FDA-Public Use
  Company Number: US-ALLERGAN-1005026US

PATIENT
  Age: 32 Year
  Sex: Female

DRUGS (2)
  1. BOTOX COSMETIC [Suspect]
     Indication: SKIN WRINKLING
     Dosage: 20 UNITS, SINGLE
     Route: 030
     Dates: start: 20100412, end: 20100412
  2. BIRTH CONTROL PILLS [Concomitant]

REACTIONS (7)
  - HEADACHE [None]
  - INFLUENZA LIKE ILLNESS [None]
  - NAUSEA [None]
  - ORAL MUCOSAL ERUPTION [None]
  - OROPHARYNGEAL PAIN [None]
  - PALATAL DISORDER [None]
  - WRONG TECHNIQUE IN DRUG USAGE PROCESS [None]
